FAERS Safety Report 13545329 (Version 1)
Quarter: 2017Q2

REPORT INFORMATION
  Report Type: Spontaneous
  Country: US (occurrence: US)
  Receive Date: 20170513
  Receipt Date: 20170513
  Transmission Date: 20170830
  Serious: Yes (Other)
  Sender: FDA-Public Use
  Company Number: None

PATIENT
  Age: 54 Year
  Sex: Male
  Weight: 130.5 kg

DRUGS (14)
  1. LISINOPRIL. [Concomitant]
     Active Substance: LISINOPRIL
  2. REPAGLINIDE. [Concomitant]
     Active Substance: REPAGLINIDE
  3. INVOKANA [Concomitant]
     Active Substance: CANAGLIFLOZIN
  4. COQ10 [Concomitant]
     Active Substance: UBIDECARENONE
  5. ZIPSOR [Suspect]
     Active Substance: DICLOFENAC POTASSIUM
     Indication: BACK PAIN
     Dosage: ?          QUANTITY:4 CAPSULE(S);?
     Route: 048
     Dates: start: 20140204, end: 20140522
  6. MULTIVITAMIN [Concomitant]
     Active Substance: VITAMINS
  7. METPHORMIN [Concomitant]
  8. JANUVIA [Concomitant]
     Active Substance: SITAGLIPTIN PHOSPHATE
  9. ALLEGRA [Concomitant]
     Active Substance: FEXOFENADINE HYDROCHLORIDE
  10. VESICARE [Concomitant]
     Active Substance: SOLIFENACIN SUCCINATE
  11. LEVITRA [Concomitant]
     Active Substance: VARDENAFIL HYDROCHLORIDE TRIHYDRATE
  12. ASPIRIN. [Concomitant]
     Active Substance: ASPIRIN
  13. GLIPIZIDE ER [Concomitant]
     Active Substance: GLIPIZIDE
  14. MONTELUKAST [Concomitant]
     Active Substance: MONTELUKAST SODIUM

REACTIONS (4)
  - Dysgeusia [None]
  - Hyposmia [None]
  - Ageusia [None]
  - Parosmia [None]

NARRATIVE: CASE EVENT DATE: 20140204
